FAERS Safety Report 25978313 (Version 3)
Quarter: 2025Q4

REPORT INFORMATION
  Report Type: Spontaneous
  Country: US (occurrence: US)
  Receive Date: 20251030
  Receipt Date: 20251217
  Transmission Date: 20260118
  Serious: No
  Sender: TOLMAR
  Company Number: US-Tolmar-TLM-2025-07933

PATIENT

DRUGS (3)
  1. ELIGARD [Suspect]
     Active Substance: LEUPROLIDE ACETATE
     Indication: Prostate cancer
     Dosage: DOSE NOT ADMINISTERED?SN: 9372239978815?GTIN: 00362935227106?LOT: 15187RCUS EXP: 05/2026?SYRINGE A:
  2. ELIGARD [Suspect]
     Active Substance: LEUPROLIDE ACETATE
     Dosage: REPLACEMENT DOSE
  3. DEVICE [Suspect]
     Active Substance: DEVICE
     Indication: Prostate cancer
     Dosage: DOSE NOT ADMINISTERED?SN: 9372239978815?GTIN: 00362935227106?LOT: 15187RCUS EXP: 05/2026?SYRINGE A:

REACTIONS (2)
  - Intercepted product preparation error [Unknown]
  - Device occlusion [Unknown]
